FAERS Safety Report 23596434 (Version 1)
Quarter: 2024Q1

REPORT INFORMATION
  Report Type: Spontaneous
  Country: US (occurrence: None)
  Receive Date: 20240304
  Receipt Date: 20240304
  Transmission Date: 20240410
  Serious: Yes (Disabling)
  Sender: FDA-Public Use
  Company Number: None

PATIENT
  Age: 68 Year
  Sex: Female
  Weight: 76.5 kg

DRUGS (7)
  1. SENSODYNE REPAIR AND PROTECT [Suspect]
     Active Substance: STANNOUS FLUORIDE
     Indication: Dental disorder prophylaxis
     Dates: start: 20240122, end: 20240227
  2. VALSARTAN [Concomitant]
     Active Substance: VALSARTAN
  3. SPIRONOLACTONE [Concomitant]
     Active Substance: SPIRONOLACTONE
  4. ROSUVASTATIN [Concomitant]
     Active Substance: ROSUVASTATIN
  5. ESCITALOPRAM [Concomitant]
     Active Substance: ESCITALOPRAM OXALATE
  6. OMEPRAZOLE [Concomitant]
     Active Substance: OMEPRAZOLE
  7. Vit. D3 [Concomitant]

REACTIONS (3)
  - Product physical consistency issue [None]
  - Product formulation issue [None]
  - Dysgeusia [None]

NARRATIVE: CASE EVENT DATE: 20240122
